FAERS Safety Report 12556134 (Version 2)
Quarter: 2016Q3

REPORT INFORMATION
  Report Type: Report from Study
  Country: US (occurrence: US)
  Receive Date: 20160714
  Receipt Date: 20160715
  Transmission Date: 20161109
  Serious: Yes (Hospitalization, Other)
  Sender: FDA-Public Use
  Company Number: US-BAYER-2016-133239

PATIENT
  Age: 77 Year
  Sex: Female

DRUGS (1)
  1. NEXAVAR [Suspect]
     Active Substance: SORAFENIB
     Indication: HEPATOCELLULAR CARCINOMA
     Dosage: 400 MG, BID
     Route: 048
     Dates: start: 20160701, end: 201607

REACTIONS (10)
  - Slow response to stimuli [None]
  - Lethargy [None]
  - Diarrhoea [None]
  - Incontinence [None]
  - Dehydration [None]
  - Asthenia [None]
  - Decreased appetite [None]
  - Blood pressure increased [None]
  - Abdominal pain [None]
  - Fatigue [None]

NARRATIVE: CASE EVENT DATE: 201607
